FAERS Safety Report 4616838-1 (Version None)
Quarter: 2005Q1

REPORT INFORMATION
  Report Type: 
  Country: None (occurrence: None)
  Receive Date: 20050321
  Receipt Date: 20050304
  Transmission Date: 20050727
  Serious: Yes (Hospitalization)
  Sender: FDA-Public Use
  Company Number: 10487

PATIENT
  Age: 29 Year
  Sex: Female

DRUGS (1)
  1. AMIKACIN [Suspect]
     Indication: BACTERAEMIA
     Dosage: 7.5 MG/KG
     Route: 042

REACTIONS (3)
  - BLOOD CREATINE PHOSPHOKINASE INCREASED [None]
  - LYMPHOCYTE COUNT INCREASED [None]
  - MYOSITIS [None]
